FAERS Safety Report 10730748 (Version 1)
Quarter: 2015Q1

REPORT INFORMATION
  Report Type: Spontaneous
  Country: HR (occurrence: HR)
  Receive Date: 20150122
  Receipt Date: 20150122
  Transmission Date: 20150721
  Serious: Yes (Other)
  Sender: FDA-Public Use
  Company Number: HR-MERCK-1501HRV005143

PATIENT
  Age: 70 Year
  Sex: Male
  Weight: 80 kg

DRUGS (15)
  1. SUFENTANIL CITRATE. [Concomitant]
     Active Substance: SUFENTANIL CITRATE
     Route: 042
     Dates: start: 20140915, end: 20140915
  2. DORMICUM (MIDAZOLAM HYDROCHLORIDE) [Concomitant]
     Active Substance: MIDAZOLAM HYDROCHLORIDE
     Route: 030
     Dates: start: 20140915, end: 20140915
  3. NITROLINGUAL [Concomitant]
     Active Substance: NITROGLYCERIN
  4. AMARYL [Concomitant]
     Active Substance: GLIMEPIRIDE
  5. SORTIS [Concomitant]
     Active Substance: ATORVASTATIN
  6. PREDUCTAL MR [Concomitant]
     Active Substance: TRIMETAZIDINE DIHYDROCHLORIDE
  7. GLUFORMIN [Concomitant]
     Active Substance: METFORMIN HYDROCHLORIDE
  8. HYDROCHLOROTHIAZIDE (+) RAMIPRIL [Concomitant]
  9. CARDIOPIRIN [Concomitant]
     Active Substance: ASPIRIN
  10. RAMED [Concomitant]
  11. HYPNOMIDATE [Concomitant]
     Active Substance: ETOMIDATE SULFATE
     Route: 042
     Dates: start: 20140915, end: 20140915
  12. CORDARONE [Concomitant]
     Active Substance: AMIODARONE HYDROCHLORIDE
  13. CONCOR [Concomitant]
     Active Substance: BISOPROLOL FUMARATE
  14. ESMERON [Suspect]
     Active Substance: ROCURONIUM BROMIDE
     Indication: INDUCTION OF ANAESTHESIA
     Route: 042
     Dates: start: 20140915, end: 20140915
  15. LACIPIL [Concomitant]
     Active Substance: LACIDIPINE

REACTIONS (3)
  - Prolonged expiration [Unknown]
  - Bronchospasm [Unknown]
  - Wheezing [Unknown]

NARRATIVE: CASE EVENT DATE: 20140915
